FAERS Safety Report 7384116-6 (Version None)
Quarter: 2011Q1

REPORT INFORMATION
  Report Type: 
  Country: None (occurrence: None)
  Receive Date: 20110330
  Receipt Date: 20110325
  Transmission Date: 20110831
  Serious: Yes (Death, Hospitalization)
  Sender: FDA-Public Use
  Company Number: A0915994A

PATIENT
  Age: 85 Year
  Sex: Male

DRUGS (18)
  1. NYSTATIN [Concomitant]
  2. NITROGLYCERIN [Concomitant]
     Indication: CHEST PAIN
  3. DORZOLAMIDE [Concomitant]
  4. PROMACTA [Suspect]
     Indication: IDIOPATHIC THROMBOCYTOPENIC PURPURA
     Dosage: 75MG PER DAY
     Route: 048
     Dates: start: 20100920, end: 20101023
  5. RANITIDINE [Concomitant]
     Dosage: 75MG PER DAY
  6. TORSEMIDE [Concomitant]
  7. CORTICOSTEROIDS [Concomitant]
     Indication: IDIOPATHIC THROMBOCYTOPENIC PURPURA
  8. ACYCLOVIR [Concomitant]
     Dosage: 200MG TWICE PER DAY
     Route: 048
  9. FINASTERIDE [Concomitant]
     Dosage: 5MG PER DAY
     Route: 048
  10. FOLIC ACID [Concomitant]
     Dosage: 800MCG PER DAY
  11. MULTI-VITAMIN [Concomitant]
  12. BACITRACIN [Concomitant]
     Route: 061
  13. TRAMADOL [Concomitant]
     Indication: PAIN
     Dosage: .5MG AS REQUIRED
     Route: 048
  14. METOPROLOL SUCCINATE [Concomitant]
     Dosage: 25MG PER DAY
  15. TRAVOPROST [Concomitant]
  16. ATORVASTATIN CALCIUM [Concomitant]
  17. BRIMONIDINE TARTRATE [Concomitant]
  18. CHOLECALCIFEROL [Concomitant]

REACTIONS (3)
  - DEEP VEIN THROMBOSIS [None]
  - CARDIAC FAILURE [None]
  - ATRIAL FIBRILLATION [None]
